FAERS Safety Report 5400920-5 (Version None)
Quarter: 2007Q3

REPORT INFORMATION
  Report Type: 
  Country: None (occurrence: None)
  Receive Date: 20070730
  Receipt Date: 20061121
  Transmission Date: 20080115
  Serious: No
  Sender: FDA-Public Use
  Company Number: A0628297A

PATIENT
  Age: 4 Month
  Sex: Male

DRUGS (2)
  1. ZANTAC 150 [Suspect]
     Dosage: 1.25TSP TWICE PER DAY
     Route: 048
     Dates: start: 20061111
  2. NO CONCURRENT MEDICATION [Concomitant]

REACTIONS (3)
  - DIARRHOEA [None]
  - MEDICATION ERROR [None]
  - OVERDOSE [None]
